FAERS Safety Report 15873074 (Version 1)
Quarter: 2019Q1

REPORT INFORMATION
  Report Type: Other
  Country: US (occurrence: US)
  Receive Date: 20190126
  Receipt Date: 20190126
  Transmission Date: 20190417
  Serious: Yes (Disabling, Other)
  Sender: FDA-Public Use
  Company Number: US-ACORDA-ACO_149217_2018

PATIENT
  Sex: Female

DRUGS (1)
  1. AMPYRA [Suspect]
     Active Substance: DALFAMPRIDINE
     Indication: MOVEMENT DISORDER
     Dosage: 10 MG, BID
     Route: 048

REACTIONS (4)
  - Bedridden [Not Recovered/Not Resolved]
  - Hip fracture [Not Recovered/Not Resolved]
  - Therapeutic response unexpected [Unknown]
  - Off label use [Unknown]
